FAERS Safety Report 21040205 (Version 8)
Quarter: 2022Q4

REPORT INFORMATION
  Report Type: Report from Study
  Country: US (occurrence: US)
  Receive Date: 20220704
  Receipt Date: 20221215
  Transmission Date: 20230113
  Serious: Yes (Other)
  Sender: FDA-Public Use
  Company Number: US-NOVARTISTESTPH-NVSC2022US151453

PATIENT
  Age: 79 Year
  Sex: Female

DRUGS (4)
  1. KISQALI [Suspect]
     Active Substance: RIBOCICLIB
     Indication: Product used for unknown indication
     Dosage: UNK
     Route: 048
     Dates: start: 20220627, end: 20220627
  2. KISQALI [Suspect]
     Active Substance: RIBOCICLIB
     Dosage: 600 MG, QD
     Route: 048
  3. KISQALI [Suspect]
     Active Substance: RIBOCICLIB
     Dosage: 600 MG, QD
     Route: 048
     Dates: start: 20220809
  4. KISQALI [Suspect]
     Active Substance: RIBOCICLIB
     Dosage: 400 MG
     Route: 065

REACTIONS (20)
  - Neuropathy peripheral [Unknown]
  - Pigmentation disorder [Unknown]
  - Taste disorder [Unknown]
  - Eating disorder [Unknown]
  - COVID-19 [Unknown]
  - Abdominal discomfort [Unknown]
  - Feeding disorder [Unknown]
  - Oral mucosal blistering [Unknown]
  - Full blood count decreased [Unknown]
  - Insomnia [Unknown]
  - Infection [Unknown]
  - Nausea [Unknown]
  - Headache [Unknown]
  - Stomatitis [Unknown]
  - Constipation [Unknown]
  - Decreased appetite [Unknown]
  - White blood cell count decreased [Unknown]
  - Pyrexia [Unknown]
  - Cystitis [Unknown]
  - Abdominal pain upper [Unknown]

NARRATIVE: CASE EVENT DATE: 20220912
